FAERS Safety Report 7295138-8 (Version None)
Quarter: 2011Q1

REPORT INFORMATION
  Report Type: 
  Country: None (occurrence: None)
  Receive Date: 20110216
  Receipt Date: 20110207
  Transmission Date: 20110831
  Serious: Yes (Other)
  Sender: FDA-Public Use
  Company Number: FR-NOVOPROD-323161

PATIENT
  Age: 57 Year
  Sex: Female

DRUGS (4)
  1. DIAMICRON [Suspect]
     Indication: DIABETES MELLITUS
     Dosage: 30 MG, TID
     Route: 065
     Dates: start: 20050101
  2. VICTOZA [Suspect]
     Indication: DIABETES MELLITUS
     Dosage: UNK
     Route: 065
  3. ONGLYZA [Suspect]
     Indication: DIABETES MELLITUS
     Dosage: UNK
     Route: 065
     Dates: start: 20101123, end: 20101203
  4. METFORMIN [Suspect]
     Indication: DIABETES MELLITUS
     Dosage: 850 MG, TID
     Route: 065

REACTIONS (2)
  - NAUSEA [None]
  - ABDOMINAL PAIN UPPER [None]
